FAERS Safety Report 16899793 (Version 1)
Quarter: 2019Q4

REPORT INFORMATION
  Report Type: Spontaneous
  Country: US (occurrence: US)
  Receive Date: 20191008
  Receipt Date: 20191008
  Transmission Date: 20200122
  Serious: Yes (Other)
  Sender: FDA-Public Use
  Company Number: None

PATIENT
  Age: 63 Year
  Sex: Male
  Weight: 77.4 kg

DRUGS (1)
  1. ENBREL [Suspect]
     Active Substance: ETANERCEPT
     Indication: PSORIATIC ARTHROPATHY
     Dosage: ?          QUANTITY:4 INJECTION(S);OTHER FREQUENCY:WEEKLY;?
     Route: 058
     Dates: start: 20190924, end: 20191001

REACTIONS (9)
  - Influenza like illness [None]
  - Headache [None]
  - Injection site swelling [None]
  - Injection site erythema [None]
  - Dizziness [None]
  - Pruritus [None]
  - Sinusitis [None]
  - Burning sensation [None]
  - Nasal congestion [None]

NARRATIVE: CASE EVENT DATE: 20191005
